FAERS Safety Report 18859534 (Version 1)
Quarter: 2021Q1

REPORT INFORMATION
  Report Type: Spontaneous
  Country: US (occurrence: US)
  Receive Date: 20210208
  Receipt Date: 20210208
  Transmission Date: 20210420
  Serious: Yes (Hospitalization)
  Sender: FDA-Public Use
  Company Number: US-GLAXOSMITHKLINE-US2021025183

PATIENT
  Sex: Male

DRUGS (3)
  1. ADVAIR HFA [Suspect]
     Active Substance: FLUTICASONE PROPIONATE\SALMETEROL XINAFOATE
     Indication: ASTHMA
     Dosage: 2 PUFF(S), BID
     Route: 055
     Dates: start: 20201006
  2. SPIRIVA [Suspect]
     Active Substance: TIOTROPIUM BROMIDE MONOHYDRATE
     Indication: ASTHMA
     Dosage: 1 PUFF(S), 1D
     Route: 055
  3. FLOVENT HFA [Suspect]
     Active Substance: FLUTICASONE PROPIONATE
     Indication: ASTHMA
     Dosage: 2 PUFF(S), BID, 110 MCG.
     Route: 055

REACTIONS (14)
  - Heart rate increased [Recovering/Resolving]
  - Vomiting [Recovered/Resolved]
  - Cardiac disorder [Recovered/Resolved]
  - Heart rate decreased [Unknown]
  - Abdominal distension [Not Recovered/Not Resolved]
  - Bowel movement irregularity [Not Recovered/Not Resolved]
  - Abdominal pain lower [Not Recovered/Not Resolved]
  - Drug ineffective [Unknown]
  - Oxygen saturation decreased [Recovering/Resolving]
  - Gastrointestinal disorder [Not Recovered/Not Resolved]
  - Adverse drug reaction [Recovering/Resolving]
  - Faeces pale [Not Recovered/Not Resolved]
  - Constipation [Unknown]
  - Gastrointestinal bacterial overgrowth [Unknown]
